FAERS Safety Report 9633323 (Version 1)
Quarter: 2013Q4

REPORT INFORMATION
  Report Type: Report from Study
  Country: BR (occurrence: BR)
  Receive Date: 20131021
  Receipt Date: 20131021
  Transmission Date: 20140711
  Serious: Yes (Other)
  Sender: FDA-Public Use
  Company Number: BR-ROCHE-1289498

PATIENT
  Age: 41 Year
  Sex: Female
  Weight: 64 kg

DRUGS (1)
  1. ACTEMRA [Suspect]
     Indication: RHEUMATOID ARTHRITIS
     Dosage: MOST RECENT ACTEMRA INFUSION WAS PERFORMED ON 06/AUG/2013
     Route: 042
     Dates: start: 20121001

REACTIONS (2)
  - Drug-induced liver injury [Recovered/Resolved]
  - Enzyme level increased [Recovered/Resolved]
